FAERS Safety Report 6596972-X (Version None)
Quarter: 2010Q1

REPORT INFORMATION
  Report Type: 
  Country: None (occurrence: None)
  Receive Date: 20100222
  Receipt Date: 20100222
  Transmission Date: 20100710
  Serious: Yes (Life-Threatening, Hospitalization, Other)
  Sender: FDA-Public Use
  Company Number: None

PATIENT
  Sex: Female
  Weight: 57.6068 kg

DRUGS (16)
  1. AMPHETAMINES [Suspect]
     Indication: BIPOLAR DISORDER
     Dosage: 20 MG 3 TIMES DAILY PO
     Route: 048
     Dates: start: 20080501, end: 20090904
  2. AMPHETAMINES [Suspect]
     Indication: DISTURBANCE IN ATTENTION
     Dosage: 20 MG 3 TIMES DAILY PO
     Route: 048
     Dates: start: 20080501, end: 20090904
  3. AMPHETAMINES [Suspect]
     Indication: BIPOLAR DISORDER
     Dosage: 20 MG 3 TIMES DAILY PO
     Route: 048
     Dates: start: 20091113, end: 20100213
  4. AMPHETAMINES [Suspect]
     Indication: DISTURBANCE IN ATTENTION
     Dosage: 20 MG 3 TIMES DAILY PO
     Route: 048
     Dates: start: 20091113, end: 20100213
  5. LAMICTAL CD [Concomitant]
  6. ABILIFY [Concomitant]
  7. SEROQUEL [Concomitant]
  8. CLONAZEPAM [Concomitant]
  9. XANAX [Concomitant]
  10. AMBIEN [Concomitant]
  11. PROPRANOLOL [Concomitant]
  12. BYSTOLIC [Concomitant]
  13. MIDODRINE HYDROCHLORIDE [Concomitant]
  14. IMITREX [Concomitant]
  15. MAXALT [Concomitant]
  16. ZYPREXA [Concomitant]

REACTIONS (27)
  - ARRHYTHMIA [None]
  - ASTHENIA [None]
  - CHEST PAIN [None]
  - CONCUSSION [None]
  - CONFUSIONAL STATE [None]
  - DECREASED APPETITE [None]
  - DIZZINESS [None]
  - DYSPNOEA [None]
  - FALL [None]
  - HEAD INJURY [None]
  - HYPOPHAGIA [None]
  - INSOMNIA [None]
  - LIMB INJURY [None]
  - LOSS OF CONSCIOUSNESS [None]
  - MYOCARDIAL INFARCTION [None]
  - NAUSEA [None]
  - ORTHOSTATIC HYPOTENSION [None]
  - OVERDOSE [None]
  - PALPITATIONS [None]
  - PRODUCT MEASURED POTENCY ISSUE [None]
  - PRODUCT QUALITY ISSUE [None]
  - REFUSAL OF TREATMENT BY PATIENT [None]
  - SUPRAVENTRICULAR TACHYCARDIA [None]
  - THINKING ABNORMAL [None]
  - TINNITUS [None]
  - VISION BLURRED [None]
  - VISUAL IMPAIRMENT [None]
